FAERS Safety Report 11536899 (Version 1)
Quarter: 2015Q3

REPORT INFORMATION
  Report Type: Spontaneous
  Country: US (occurrence: None)
  Receive Date: 20150921
  Receipt Date: 20150921
  Transmission Date: 20151125
  Serious: Yes (Other)
  Sender: FDA-Public Use
  Company Number: None

PATIENT
  Age: 19 Year
  Sex: Female
  Weight: 56.7 kg

DRUGS (2)
  1. NEXPLANON [Suspect]
     Active Substance: ETONOGESTREL
  2. PARAGARD T 380A [Concomitant]
     Active Substance: COPPER

REACTIONS (4)
  - Device dislocation [None]
  - Menstruation irregular [None]
  - Menorrhagia [None]
  - Complication of device removal [None]

NARRATIVE: CASE EVENT DATE: 20150916
